FAERS Safety Report 21251302 (Version 1)
Quarter: 2022Q3

REPORT INFORMATION
  Report Type: Report from Study
  Country: US (occurrence: US)
  Receive Date: 20220825
  Receipt Date: 20220825
  Transmission Date: 20221026
  Serious: Yes (Hospitalization)
  Sender: FDA-Public Use
  Company Number: US-ORPHANEU-2022002842

PATIENT

DRUGS (2)
  1. CARBAGLU [Suspect]
     Active Substance: CARGLUMIC ACID
     Indication: Hyperglycinaemia
     Dosage: 450 MILLIGRAM, BID
     Dates: start: 202012
  2. CARBAGLU [Suspect]
     Active Substance: CARGLUMIC ACID
     Dosage: TWO 200 MG TABLETS (400 MG) DISSOLVED IN 2.5 ML OF WATER INGEST BID AND DISSOLVE 500 MG (2.5 TABLET)
     Dates: start: 202001

REACTIONS (1)
  - Ammonia increased [Unknown]
